FAERS Safety Report 9948103 (Version 1)
Quarter: 2014Q1

REPORT INFORMATION
  Report Type: Report from Study
  Country: US (occurrence: US)
  Receive Date: 20140303
  Receipt Date: 20140303
  Transmission Date: 20141002
  Serious: No
  Sender: FDA-Public Use
  Company Number: US-ABBVIE-13P-163-1059210-00

PATIENT
  Age: 45 Year
  Sex: Male

DRUGS (5)
  1. HUMIRA [Suspect]
     Indication: PSORIASIS
     Dates: start: 2009
  2. HUMIRA [Suspect]
  3. SINGULAIR [Concomitant]
     Indication: ASTHMA
  4. ISOPTIN [Concomitant]
     Indication: HYPERTENSION
  5. UNKNOWN OINTMENT [Concomitant]
     Indication: PSORIASIS

REACTIONS (3)
  - Drug dose omission [Not Recovered/Not Resolved]
  - Rash [Not Recovered/Not Resolved]
  - Urine abnormality [Not Recovered/Not Resolved]
